FAERS Safety Report 18758592 (Version 2)
Quarter: 2021Q1

REPORT INFORMATION
  Report Type: Report from Study
  Country: US (occurrence: US)
  Receive Date: 20210119
  Receipt Date: 20210212
  Transmission Date: 20210419
  Serious: Yes (Hospitalization)
  Sender: FDA-Public Use
  Company Number: US-JNJFOC-20210115300

PATIENT
  Age: 1 Year
  Sex: Female
  Weight: 6.81 kg

DRUGS (3)
  1. BOSENTAN. [Suspect]
     Active Substance: BOSENTAN
     Indication: PULMONARY HYPERTENSION
     Dosage: GIVE ONE?HALF (1/2) TABLET TWICE DAILY. DISPERSE TABLETS FOR ORAL SUSPENSION IN A MINIMAL AMOUNT OF
     Route: 048
  2. REMODULIN [Concomitant]
     Active Substance: TREPROSTINIL
  3. SILDENAFIL CITRATE. [Concomitant]
     Active Substance: SILDENAFIL CITRATE

REACTIONS (6)
  - Nausea [Unknown]
  - Off label use [Unknown]
  - Vomiting [Unknown]
  - Diarrhoea [Unknown]
  - Gastrointestinal tube insertion [Unknown]
  - Product use issue [Unknown]

NARRATIVE: CASE EVENT DATE: 20210107
